FAERS Safety Report 23999558 (Version 1)
Quarter: 2024Q2

REPORT INFORMATION
  Report Type: Spontaneous
  Country: US (occurrence: US)
  Receive Date: 20240621
  Receipt Date: 20240621
  Transmission Date: 20240715
  Serious: No
  Sender: FDA-Public Use
  Company Number: US-KYOWAKIRIN-2024KK014917

PATIENT

DRUGS (5)
  1. NOURIANZ [Suspect]
     Active Substance: ISTRADEFYLLINE
     Indication: Parkinson^s disease
     Dosage: 20 MG, QD
     Route: 048
     Dates: start: 20240514, end: 20240617
  2. FOSAMAX [Concomitant]
     Active Substance: ALENDRONATE SODIUM
     Indication: Product used for unknown indication
     Dosage: 35 MG (4PK)
     Route: 065
  3. LIPITOR [Concomitant]
     Active Substance: ATORVASTATIN CALCIUM
     Indication: Product used for unknown indication
     Dosage: 10 MG
     Route: 065
  4. RASAGILINE [Concomitant]
     Active Substance: RASAGILINE\RASAGILINE MESYLATE
     Indication: Product used for unknown indication
     Dosage: 1 MG
     Route: 065
  5. RYTARY [Concomitant]
     Active Substance: CARBIDOPA\LEVODOPA
     Indication: Product used for unknown indication
     Dosage: 48.75-195MG (ER)
     Route: 065

REACTIONS (1)
  - Insurance issue [Recovered/Resolved]

NARRATIVE: CASE EVENT DATE: 20240617
